FAERS Safety Report 23644639 (Version 1)
Quarter: 2024Q1

REPORT INFORMATION
  Report Type: Spontaneous
  Country: US (occurrence: None)
  Receive Date: 20240317
  Receipt Date: 20240317
  Transmission Date: 20240410
  Serious: Yes (Hospitalization)
  Sender: FDA-Public Use
  Company Number: None

PATIENT
  Age: 29 Year
  Sex: Female
  Weight: 58.05 kg

DRUGS (1)
  1. METHENAMINE [Suspect]
     Active Substance: METHENAMINE
     Dates: start: 20240301, end: 20240317

REACTIONS (3)
  - Dysuria [None]
  - Nausea [None]
  - Decreased appetite [None]

NARRATIVE: CASE EVENT DATE: 20240310
